FAERS Safety Report 24541133 (Version 3)
Quarter: 2025Q4

REPORT INFORMATION
  Report Type: Spontaneous
  Country: KR (occurrence: KR)
  Receive Date: 20241023
  Receipt Date: 20251024
  Transmission Date: 20260118
  Serious: Yes (Death)
  Sender: PFIZER
  Company Number: KR-PFIZER INC-PV202400091484

PATIENT
  Age: 55 Year
  Sex: Female

DRUGS (23)
  1. IBRANCE [Suspect]
     Active Substance: PALBOCICLIB
     Indication: Malignant neoplasm of thymus
     Dosage: 125 MG, 1X/DAY (1 CAP, ONCE DAILY FOR 28 DAYS)
     Route: 048
  2. IBRANCE [Suspect]
     Active Substance: PALBOCICLIB
     Indication: Malignant neoplasm of thymus
     Dosage: 125 MG, 1X/DAY (1 TAB, ONCE DAILY FOR 28 DAYS)
     Route: 048
  3. IBRANCE [Suspect]
     Active Substance: PALBOCICLIB
     Dosage: 125 MG, 1X/DAY (1 TAB, ONCE DAILY FOR 21 DAYS)
     Route: 048
  4. ALMAGEL-F [Concomitant]
     Dosage: UNK UNK, 3X/DAY
     Route: 048
  5. BANAN [Concomitant]
     Active Substance: CEFPODOXIME PROXETIL
     Dosage: 100 MG, 2X/DAY
     Route: 048
  6. COUGH SYRUP [AMMONIUM CHLORIDE;CHLORPHENAMINE MALEATE;DIHYDROCODEINE B [Concomitant]
     Dosage: 1 DF, 2X/DAY
     Route: 048
  7. FEXUCLUE [Concomitant]
     Dosage: 40 MG, 1X/DAY
     Route: 048
  8. OXYCODONE HYDROCHLORIDE [Concomitant]
     Active Substance: OXYCODONE HYDROCHLORIDE
     Dosage: 10 MG, AS NEEDED
     Route: 048
  9. OXYCODONE HYDROCHLORIDE [Concomitant]
     Active Substance: OXYCODONE HYDROCHLORIDE
     Dosage: 5 MG, AS NEEDED FOR 63 DAYS
     Route: 048
  10. LOPERAMIDE HYDROCHLORIDE [Concomitant]
     Active Substance: LOPERAMIDE HYDROCHLORIDE
     Indication: Diarrhoea
     Dosage: UNK
     Route: 048
  11. MACPERAN [METOCLOPRAMIDE HYDROCHLORIDE] [Concomitant]
     Indication: Prophylaxis of nausea and vomiting
     Dosage: UNK, AS NEEDED
     Route: 048
  12. MAGMIL S [Concomitant]
     Indication: Constipation
     Dosage: UNK
     Route: 048
  13. MEGACE F [Concomitant]
     Dosage: UNK, 1X/DAY
     Route: 048
  14. BROMHEXINE HYDROCHLORIDE [Concomitant]
     Active Substance: BROMHEXINE HYDROCHLORIDE
     Dosage: UNK UNK, 3X/DAY
     Route: 048
  15. NAXEN-F [Concomitant]
     Indication: Pyrexia
     Dosage: 0.5 DF, 2X/DAY
     Route: 048
  16. NAXEN-F [Concomitant]
     Dosage: 1 DF, 2X/DAY
     Route: 048
  17. NAXEN-F [Concomitant]
     Dosage: 0.5 DF, AS NEEDED FOR 30 DAYS
     Route: 048
  18. BENZYDAMINE HYDROCHLORIDE [Concomitant]
     Active Substance: BENZYDAMINE HYDROCHLORIDE
  19. SODIUM BICARBONATE [Concomitant]
     Active Substance: SODIUM BICARBONATE
     Dosage: UNK
  20. NALOXONE HYDROCHLORIDE\OXYCODONE HYDROCHLORIDE [Concomitant]
     Active Substance: NALOXONE HYDROCHLORIDE\OXYCODONE HYDROCHLORIDE
     Dosage: 1 DF, 2X/DAY(EVERY 12 HOURS)
     Route: 048
  21. NALOXONE HYDROCHLORIDE\OXYCODONE HYDROCHLORIDE [Concomitant]
     Active Substance: NALOXONE HYDROCHLORIDE\OXYCODONE HYDROCHLORIDE
     Dosage: 2.5 MG, 2X/DAY(EVERY 12 HOURS)
     Route: 048
  22. TYLENOL 8HR [Concomitant]
     Active Substance: ACETAMINOPHEN
     Dosage: UNK, 4X/DAY
     Route: 048
  23. NALOXONE HYDROCHLORIDE\OXYCODONE HYDROCHLORIDE [Concomitant]
     Active Substance: NALOXONE HYDROCHLORIDE\OXYCODONE HYDROCHLORIDE
     Dosage: 1 DF, 2X/DAY FOR 63 DAYS
     Route: 048

REACTIONS (4)
  - Pneumonia [Fatal]
  - Off label use [Unknown]
  - Off label use [Unknown]
  - Product use issue [Unknown]

NARRATIVE: CASE EVENT DATE: 20241009
